FAERS Safety Report 7366106-2 (Version None)
Quarter: 2011Q1

REPORT INFORMATION
  Report Type: 
  Country: None (occurrence: None)
  Receive Date: 20110322
  Receipt Date: 20110308
  Transmission Date: 20110831
  Serious: Yes (Hospitalization)
  Sender: FDA-Public Use
  Company Number: US-JNJFOC-20081105863

PATIENT
  Sex: Male
  Weight: 27 kg

DRUGS (8)
  1. REMICADE [Suspect]
     Indication: COLITIS ULCERATIVE
     Dosage: 16 DOSES RECEIVED
     Route: 042
  2. VITAMIN K TAB [Concomitant]
  3. IRON [Concomitant]
  4. REMICADE [Suspect]
     Route: 042
  5. REMICADE [Suspect]
     Indication: COLITIS
     Dosage: 16 DOSES RECEIVED
     Route: 042
  6. URSODIOL [Concomitant]
  7. REMICADE [Suspect]
     Route: 042
  8. PREVACID [Concomitant]

REACTIONS (1)
  - POST PROCEDURAL HAEMORRHAGE [None]
